FAERS Safety Report 7063458-8 (Version None)
Quarter: 2010Q4

REPORT INFORMATION
  Report Type: 
  Country: None (occurrence: None)
  Receive Date: 20101026
  Receipt Date: 20100409
  Transmission Date: 20110411
  Serious: No
  Sender: FDA-Public Use
  Company Number: US-ABBOTT-10P-163-0631919-00

PATIENT
  Sex: Female
  Weight: 80.358 kg

DRUGS (1)
  1. LUPRON DEPOT [Suspect]
     Indication: ENDOMETRIOSIS
     Dosage: ONCE
     Dates: start: 20080912, end: 20080912

REACTIONS (14)
  - DIZZINESS [None]
  - EXTERNAL EAR INFLAMMATION [None]
  - HEADACHE [None]
  - HYPOPHAGIA [None]
  - INFLAMMATION [None]
  - LOCAL SWELLING [None]
  - NECK PAIN [None]
  - OSTEITIS [None]
  - PAIN [None]
  - PAIN IN JAW [None]
  - PARAESTHESIA [None]
  - PHARYNGEAL INFLAMMATION [None]
  - PILOERECTION [None]
  - WEIGHT DECREASED [None]
